FAERS Safety Report 19526270 (Version 1)
Quarter: 2021Q3

REPORT INFORMATION
  Report Type: Spontaneous
  Country: US (occurrence: US)
  Receive Date: 20210713
  Receipt Date: 20210713
  Transmission Date: 20211014
  Serious: Yes (Hospitalization)
  Sender: FDA-Public Use
  Company Number: None

PATIENT
  Age: 71 Year
  Sex: Male

DRUGS (3)
  1. FUROSEMIDE (FUROSEMIDE 20MG TAB) [Suspect]
     Active Substance: FUROSEMIDE
     Dosage: ?          OTHER FREQUENCY:AM;?
     Route: 048
     Dates: start: 20200810, end: 20210325
  2. LOSARTAN (LOSARTAN 50MG TAB) [Suspect]
     Active Substance: LOSARTAN
     Indication: HYPERTENSION
     Route: 048
     Dates: start: 20200710, end: 20210325
  3. LOSARTAN (LOSARTAN 50MG TAB) [Suspect]
     Active Substance: LOSARTAN
     Indication: CARDIAC FAILURE CONGESTIVE

REACTIONS (8)
  - Dialysis [None]
  - Therapy interrupted [None]
  - Pneumothorax [None]
  - Acute kidney injury [None]
  - Renal cyst [None]
  - Acidosis [None]
  - Aspiration pleural cavity [None]
  - Hyperkalaemia [None]

NARRATIVE: CASE EVENT DATE: 20210325
